FAERS Safety Report 5715568-2 (Version None)
Quarter: 2008Q2

REPORT INFORMATION
  Report Type: 
  Country: None (occurrence: None)
  Receive Date: 20080424
  Receipt Date: 20080414
  Transmission Date: 20081010
  Serious: Yes (Other)
  Sender: FDA-Public Use
  Company Number: MY-RANBAXY-2008R3-14514

PATIENT

DRUGS (5)
  1. OFLOXACIN [Suspect]
     Dosage: UNK
     Route: 048
  2. CILASTAZOL [Concomitant]
     Indication: PLATELET AGGREGATION
     Route: 048
  3. GLYBURIDE [Concomitant]
  4. ATENOLOL [Concomitant]
  5. METFORMIN HCL [Concomitant]

REACTIONS (1)
  - MUSCLE CONTRACTIONS INVOLUNTARY [None]
